FAERS Safety Report 16489224 (Version 1)
Quarter: 2019Q2

REPORT INFORMATION
  Report Type: Spontaneous
  Country: US (occurrence: US)
  Receive Date: 20190628
  Receipt Date: 20190628
  Transmission Date: 20190711
  Serious: No
  Sender: FDA-Public Use
  Company Number: US-ACCORD-122596

PATIENT
  Age: 50 Year
  Sex: Male
  Weight: 72.57 kg

DRUGS (1)
  1. CLONAZEPAM ACCORD [Suspect]
     Active Substance: CLONAZEPAM
     Indication: ANXIETY
     Dosage: STRENGTH: 1 MG?1 MG DAILY

REACTIONS (5)
  - Abdominal pain upper [Not Recovered/Not Resolved]
  - Product substitution issue [Unknown]
  - Drug ineffective [Unknown]
  - Headache [Not Recovered/Not Resolved]
  - Insomnia [Not Recovered/Not Resolved]
